FAERS Safety Report 15417678 (Version 1)
Quarter: 2018Q3

REPORT INFORMATION
  Report Type: Report from Study
  Country: BE (occurrence: BE)
  Receive Date: 20180924
  Receipt Date: 20180924
  Transmission Date: 20181010
  Serious: Yes (Other)
  Sender: FDA-Public Use
  Company Number: BE-MYLANLABS-2018M1067659

PATIENT
  Sex: Female

DRUGS (1)
  1. PACLITAXEL. [Suspect]
     Active Substance: PACLITAXEL
     Indication: OVARIAN CANCER RECURRENT
     Dosage: 80 MG/M2 OVER 1 HOUR WEEKLY FOR 8 WEEKS, SUBSEQUENT CYCLES ON DAYS 1, 8, 15 OF EACH SUBSEQUENT 28...
     Route: 041

REACTIONS (1)
  - Skin toxicity [Unknown]
